FAERS Safety Report 6145372 (Version 6)
Quarter: 2018Q4

REPORT INFORMATION
  Report Type: Spontaneous
  Country: JP (occurrence: JP)
  Receive Date: 20061011
  Receipt Date: 20181211
  Transmission Date: 20190205
  Serious: Yes (Hospitalization, Other)
  Sender: FDA-Public Use
  Company Number: PHBS2006JP15230

PATIENT
  Age: 58 Year
  Sex: Male

DRUGS (3)
  1. GLIVEC [Suspect]
     Active Substance: IMATINIB MESYLATE
     Dosage: 100 MG, UNK
     Route: 048
     Dates: start: 200602, end: 20060213
  2. GLIVEC [Suspect]
     Active Substance: IMATINIB MESYLATE
     Dosage: 100 MG, UNK
     Route: 065
     Dates: start: 20060303, end: 20060305
  3. GLIVEC [Suspect]
     Active Substance: IMATINIB MESYLATE
     Indication: CHRONIC EOSINOPHILIC LEUKAEMIA
     Dosage: 100 MG, UNK
     Route: 048
     Dates: start: 20060120, end: 20060121

REACTIONS (19)
  - Vertebrobasilar insufficiency [Unknown]
  - Dysarthria [Unknown]
  - Altered state of consciousness [Unknown]
  - Pyrexia [Unknown]
  - Blood creatinine increased [Unknown]
  - Vomiting [Recovered/Resolved]
  - Basilar artery stenosis [Recovering/Resolving]
  - Cerebral artery embolism [Recovering/Resolving]
  - Eosinophilia [Recovering/Resolving]
  - Disorientation [Recovered/Resolved]
  - Infarction [Recovered/Resolved]
  - C-reactive protein increased [Unknown]
  - Eye movement disorder [Unknown]
  - Meningoencephalitis herpetic [Recovered/Resolved]
  - CSF cell count increased [Unknown]
  - Hemiparesis [Unknown]
  - Computerised tomogram abnormal [Unknown]
  - Diarrhoea [Recovered/Resolved]
  - Renal disorder [Recovering/Resolving]

NARRATIVE: CASE EVENT DATE: 2006
